FAERS Safety Report 15665596 (Version 1)
Quarter: 2018Q4

REPORT INFORMATION
  Report Type: Spontaneous
  Country: DE (occurrence: DE)
  Receive Date: 20181128
  Receipt Date: 20181128
  Transmission Date: 20190205
  Serious: Yes (Other)
  Sender: FDA-Public Use
  Company Number: DE-JNJFOC-20181028299

PATIENT
  Age: 30 Year
  Sex: Male
  Weight: 87 kg

DRUGS (1)
  1. XEPLION [Suspect]
     Active Substance: PALIPERIDONE PALMITATE
     Indication: PSYCHOTIC DISORDER
     Route: 030
     Dates: start: 20180713, end: 20181005

REACTIONS (2)
  - Homicide [Unknown]
  - Psychotic symptom [Unknown]

NARRATIVE: CASE EVENT DATE: 201810
